FAERS Safety Report 17255645 (Version 1)
Quarter: 2020Q1

REPORT INFORMATION
  Report Type: Report from Study
  Country: US (occurrence: US)
  Receive Date: 20200110
  Receipt Date: 20200110
  Transmission Date: 20200409
  Serious: Yes (Other)
  Sender: FDA-Public Use
  Company Number: US-UCBSA-2020000608

PATIENT
  Sex: Female

DRUGS (13)
  1. LACOSAMIDE. [Suspect]
     Active Substance: LACOSAMIDE
     Dosage: 300 MILLIGRAM, 2X/DAY (BID)
  2. KEPPRA [Suspect]
     Active Substance: LEVETIRACETAM
     Indication: PRODUCT USED FOR UNKNOWN INDICATION
     Dosage: 2500 MG AM AND 2000 MG PM
  3. MAGNESIUM [Concomitant]
     Active Substance: MAGNESIUM
     Indication: PRODUCT USED FOR UNKNOWN INDICATION
  4. LAMICTAL [Concomitant]
     Active Substance: LAMOTRIGINE
     Indication: PRODUCT USED FOR UNKNOWN INDICATION
  5. KEPPRA [Suspect]
     Active Substance: LEVETIRACETAM
     Dosage: 1500 MILLIGRAM, 2X/DAY (BID)
  6. LACOSAMIDE. [Suspect]
     Active Substance: LACOSAMIDE
     Dosage: 300 MILLIGRAM, 2X/DAY (BID)
  7. PITOCIN [OXYTOCIN] [Concomitant]
     Indication: PRODUCT USED FOR UNKNOWN INDICATION
  8. LACOSAMIDE. [Suspect]
     Active Substance: LACOSAMIDE
     Dosage: 300 MG AM 250 MG PM
  9. KEPPRA [Suspect]
     Active Substance: LEVETIRACETAM
     Dosage: 1000 MG AM AND 1500 MG PM
  10. CLONAZEPAM. [Concomitant]
     Active Substance: CLONAZEPAM
     Indication: PRODUCT USED FOR UNKNOWN INDICATION
  11. LACOSAMIDE. [Suspect]
     Active Substance: LACOSAMIDE
     Indication: PRODUCT USED FOR UNKNOWN INDICATION
     Dosage: 200 MG AM 300 MG PM
  12. LACOSAMIDE. [Suspect]
     Active Substance: LACOSAMIDE
     Dosage: 400MG AM 450 MG PM
  13. KEPPRA [Suspect]
     Active Substance: LEVETIRACETAM
     Dosage: 1500 MILLIGRAM, 2X/DAY (BID)

REACTIONS (7)
  - Maternal exposure during pregnancy [Unknown]
  - Dizziness [Unknown]
  - Partial seizures [Unknown]
  - Aura [Unknown]
  - Maternal exposure before pregnancy [Unknown]
  - Maternal exposure during breast feeding [Unknown]
  - Intentional overdose [Unknown]
